FAERS Safety Report 8590755 (Version 6)
Quarter: 2012Q4

REPORT INFORMATION
  Report Type: 
  Country: US (occurrence: US)
  Receive Date: 20120601
  Receipt Date: 20121001
  Transmission Date: 20130627
  Serious: Yes (Other)
  Sender: FDA-Public Use
  Company Number: US-SHIONOGI, INC-2012000176

PATIENT

DRUGS (4)
  1. ULESFIA [Suspect]
     Indication: LICE INFESTATION
     Dosage: half of an 8-ounce bottle
     Route: 061
     Dates: start: 20120514, end: 20120514
  2. PERMETHRIN [Concomitant]
     Dosage: UNK
     Dates: start: 201205
  3. TEA TREE OIL [Concomitant]
     Dosage: UNK
     Route: 061
     Dates: start: 201205
  4. OLIVE OIL [Concomitant]
     Dosage: UNK

REACTIONS (6)
  - Dyspnoea [Unknown]
  - Chest pain [Recovered/Resolved]
  - Psychomotor hyperactivity [Recovered/Resolved]
  - Cognitive disorder [Unknown]
  - Drug ineffective [Unknown]
  - Paraesthesia [Recovered/Resolved]
